FAERS Safety Report 12679688 (Version 1)
Quarter: 2016Q3

REPORT INFORMATION
  Report Type: Spontaneous
  Country: US (occurrence: None)
  Receive Date: 20160823
  Receipt Date: 20160823
  Transmission Date: 20161109
  Serious: Yes (Life-Threatening, Hospitalization)
  Sender: FDA-Public Use
  Company Number: None

PATIENT
  Age: 56 Year
  Sex: Male
  Weight: 114.4 kg

DRUGS (2)
  1. BUPIVACAINE/EPINEPHRINE, 0.5% [Suspect]
     Active Substance: BUPIVACAINE\EPINEPHRINE
     Indication: NERVE BLOCK
     Dosage: PARAVETEBRAL INJECTION
     Dates: start: 20160810, end: 20160810
  2. ROPIVACAINE [Concomitant]
     Active Substance: ROPIVACAINE

REACTIONS (4)
  - Hypotension [None]
  - Bradycardia [None]
  - Hypoperfusion [None]
  - Mental status changes [None]

NARRATIVE: CASE EVENT DATE: 20160810
